FAERS Safety Report 9330899 (Version 1)
Quarter: 2013Q2

REPORT INFORMATION
  Report Type: Spontaneous
  Country: US (occurrence: None)
  Receive Date: 20130531
  Receipt Date: 20130531
  Transmission Date: 20140414
  Serious: Yes (Hospitalization)
  Sender: FDA-Public Use
  Company Number: CA-ALSI-201300132

PATIENT
  Age: 10 Year
  Sex: Female
  Weight: 31 kg

DRUGS (9)
  1. NITROUS OXIDE [Suspect]
  2. ATROPINE [Suspect]
  3. BUPIVACAINE [Suspect]
  4. CEFAZOLIN [Suspect]
  5. ISOFLURANE [Suspect]
  6. MORPHINE [Suspect]
  7. (PROPOFOL) [Suspect]
  8. SUFENTA [Suspect]
  9. (CARBAMAZEPINE) [Concomitant]

REACTIONS (3)
  - Bronchospasm [None]
  - Hypotension [None]
  - Tachycardia [None]
